FAERS Safety Report 8386957-5 (Version None)
Quarter: 2012Q2

REPORT INFORMATION
  Report Type: 
  Country: None (occurrence: None)
  Receive Date: 20120525
  Receipt Date: 20120516
  Transmission Date: 20120825
  Serious: Yes (Hospitalization)
  Sender: FDA-Public Use
  Company Number: GR-SANOFI-AVENTIS-2012SA035656

PATIENT
  Age: 66 Year
  Sex: Male

DRUGS (1)
  1. PLAVIX [Suspect]
     Dosage: THERAPY START DATE: 7-8 YEARS AGO
     Route: 065

REACTIONS (3)
  - BLOOD URINE PRESENT [None]
  - HAEMATOCHEZIA [None]
  - DIVERTICULITIS [None]
